FAERS Safety Report 13866717 (Version 3)
Quarter: 2020Q1

REPORT INFORMATION
  Report Type: Spontaneous
  Country: US (occurrence: US)
  Receive Date: 20170814
  Receipt Date: 20200324
  Transmission Date: 20200409
  Serious: Yes (Other)
  Sender: FDA-Public Use
  Company Number: US-SA-2017SA148070

PATIENT
  Age: 29 Year
  Sex: Female
  Weight: 55.33 kg

DRUGS (7)
  1. DUPIXENT [Suspect]
     Active Substance: DUPILUMAB
     Dosage: 300 MG, QOW
     Route: 058
     Dates: start: 201907
  2. ZYRTEC [Concomitant]
     Active Substance: CETIRIZINE HYDROCHLORIDE
     Indication: PRURITUS
     Dosage: DOSE AND FREQUENCY: 1-2 TABLETS ONCE OR TWICE DAILY
     Route: 065
     Dates: start: 20131023
  3. TRIAMCINOLONE [Concomitant]
     Active Substance: TRIAMCINOLONE
     Indication: DERMATITIS ATOPIC
     Dosage: UNK UNK,PRN
     Route: 065
     Dates: start: 20131023
  4. DUPIXENT [Suspect]
     Active Substance: DUPILUMAB
     Indication: DERMATITIS ATOPIC
     Dosage: UNK UNK,UNK
     Route: 058
     Dates: start: 20170629
  5. DESONIDE. [Concomitant]
     Active Substance: DESONIDE
     Indication: DERMATITIS ATOPIC
     Dosage: UNK UNK,PRN
     Route: 065
     Dates: start: 20140422
  6. CLOBETASOL [Concomitant]
     Active Substance: CLOBETASOL
     Indication: DERMATITIS ATOPIC
     Dosage: UNK UNK,PRN
     Route: 065
     Dates: start: 20140422
  7. SOFT SOAP [Concomitant]
     Active Substance: SOAP
     Indication: DERMATITIS ATOPIC
     Dosage: UNK UNK,PRN
     Route: 065
     Dates: start: 20131023

REACTIONS (3)
  - Expired product administered [Unknown]
  - Staphylococcal infection [Recovered/Resolved]
  - Condition aggravated [Recovered/Resolved]

NARRATIVE: CASE EVENT DATE: 20170712
